FAERS Safety Report 23432109 (Version 2)
Quarter: 2024Q1

REPORT INFORMATION
  Report Type: Report from Study
  Country: CA (occurrence: CA)
  Receive Date: 20240123
  Receipt Date: 20240308
  Transmission Date: 20240409
  Serious: Yes (Hospitalization)
  Sender: FDA-Public Use
  Company Number: CA-ULTRAGENYX PHARMACEUTICAL INC.-CA-UGX-24-00081

PATIENT
  Sex: Female

DRUGS (2)
  1. DOJOLVI [Suspect]
     Active Substance: TRIHEPTANOIN
     Indication: Fatty acid oxidation disorder
     Dosage: UNK (STRENGTH: 100% W/W)
     Route: 048
     Dates: start: 20230216
  2. DOJOLVI [Suspect]
     Active Substance: TRIHEPTANOIN
     Dosage: UNK (STRENGTH: 100% W/W), LOW DOSE
     Route: 048

REACTIONS (3)
  - Malaise [Unknown]
  - Drug intolerance [Unknown]
  - Hospitalisation [Unknown]
